FAERS Safety Report 10678238 (Version 38)
Quarter: 2018Q3

REPORT INFORMATION
  Report Type: Report from Study
  Country: CA (occurrence: CA)
  Receive Date: 20141229
  Receipt Date: 20180917
  Transmission Date: 20181010
  Serious: Yes (Hospitalization, Other)
  Sender: FDA-Public Use
  Company Number: PHHY2013CA045262

PATIENT
  Age: 55 Year
  Sex: Female

DRUGS (20)
  1. HUMALOG [Concomitant]
     Active Substance: INSULIN LISPRO
     Indication: DIABETES MELLITUS
     Dosage: 1 DF, QID
     Route: 065
  2. RITALIN [Suspect]
     Active Substance: METHYLPHENIDATE HYDROCHLORIDE
     Indication: PRODUCT USED FOR UNKNOWN INDICATION
     Dosage: 30 MG, BID (IN AM AND NOON)
     Route: 048
  3. MORPHINE [Concomitant]
     Active Substance: MORPHINE
     Indication: PRODUCT USED FOR UNKNOWN INDICATION
     Dosage: 62 MG, Q72H
     Route: 062
  4. MELODOL [Concomitant]
     Indication: PRODUCT USED FOR UNKNOWN INDICATION
     Dosage: 2.5 MG, TID
     Route: 065
  5. SANDOSTATIN LAR DEPOT [Suspect]
     Active Substance: OCTREOTIDE ACETATE
     Dosage: UNK
     Route: 030
     Dates: start: 20170223
  6. SANDOSTATIN LAR DEPOT [Suspect]
     Active Substance: OCTREOTIDE ACETATE
     Dosage: 30 MG, QMO
     Route: 030
     Dates: start: 20171212
  7. HUMALIN [Concomitant]
     Active Substance: INSULIN NOS
     Indication: DIABETES MELLITUS
     Dosage: 1 DF, BID
     Route: 065
  8. SANDOSTATIN [Suspect]
     Active Substance: OCTREOTIDE ACETATE
     Dosage: 100 MCG, QD (FOR 1 WEEK)
     Route: 058
  9. SANDOSTATIN LAR DEPOT [Suspect]
     Active Substance: OCTREOTIDE ACETATE
     Indication: GASTROINTESTINAL CARCINOMA
     Dosage: 20 MG, QMO
     Route: 030
     Dates: start: 20130426
  10. FENTANYL. [Concomitant]
     Active Substance: FENTANYL
     Indication: PRODUCT USED FOR UNKNOWN INDICATION
     Dosage: 62 UG, UNK
     Route: 065
  11. FENTANYL. [Concomitant]
     Active Substance: FENTANYL
     Dosage: 75 UG, UNK
     Route: 065
  12. SANDOSTATIN LAR DEPOT [Suspect]
     Active Substance: OCTREOTIDE ACETATE
     Indication: INTESTINAL OBSTRUCTION
     Dosage: 20 MG, QMO
     Route: 030
  13. DECADRON [Concomitant]
     Active Substance: DEXAMETHASONE
     Indication: PRODUCT USED FOR UNKNOWN INDICATION
     Dosage: 6 MG (2MG AND 4MG), QD
     Route: 048
  14. SANDOSTATIN [Suspect]
     Active Substance: OCTREOTIDE ACETATE
     Indication: GASTROINTESTINAL CARCINOMA
     Dosage: 100 UG, TID
     Route: 058
     Dates: start: 20130402, end: 2016
  15. SANDOSTATIN [Suspect]
     Active Substance: OCTREOTIDE ACETATE
     Indication: INTESTINAL OBSTRUCTION
     Dosage: UNK UNK, BID
     Route: 058
     Dates: start: 2016
  16. SANDOSTATIN [Suspect]
     Active Substance: OCTREOTIDE ACETATE
     Dosage: 150 MCG, BID
     Route: 058
     Dates: start: 201711
  17. SANDOSTATIN [Suspect]
     Active Substance: OCTREOTIDE ACETATE
     Dosage: 100 MCG, BID (FOR 1 WEEK)
     Route: 058
     Dates: start: 2017
  18. INSULIN [Concomitant]
     Active Substance: INSULIN NOS
     Indication: DIABETES MELLITUS
     Route: 065
  19. SANDOSTATIN LAR DEPOT [Suspect]
     Active Substance: OCTREOTIDE ACETATE
     Dosage: 20 MG, QMO
     Route: 030
  20. FORMIN [Concomitant]
     Active Substance: METFORMIN HYDROCHLORIDE
     Indication: PRODUCT USED FOR UNKNOWN INDICATION
     Dosage: UNK UNK, QD
     Route: 058

REACTIONS (49)
  - Hyperhidrosis [Unknown]
  - Back pain [Unknown]
  - Hypersomnia [Unknown]
  - Sputum discoloured [Unknown]
  - Cough [Unknown]
  - Decreased appetite [Unknown]
  - Peripheral swelling [Recovering/Resolving]
  - Pulmonary embolism [Unknown]
  - Intra-abdominal fluid collection [Unknown]
  - Decreased immune responsiveness [Unknown]
  - Abdominal mass [Unknown]
  - Pneumothorax [Unknown]
  - Malignant neoplasm progression [Unknown]
  - Blood pressure systolic increased [Unknown]
  - Nasopharyngitis [Unknown]
  - Wound [Unknown]
  - Candida infection [Unknown]
  - Needle issue [Unknown]
  - Dizziness [Unknown]
  - Neck pain [Unknown]
  - Breath sounds abnormal [Unknown]
  - Erythema [Unknown]
  - Body temperature increased [Unknown]
  - Pneumonia [Recovered/Resolved]
  - Blood pressure increased [Unknown]
  - Vertigo [Unknown]
  - Nasal congestion [Unknown]
  - Abdominal pain [Unknown]
  - Pneumonia [Unknown]
  - Dyspnoea [Not Recovered/Not Resolved]
  - Nodule [Unknown]
  - Cough [Recovered/Resolved]
  - Nasal discharge discolouration [Unknown]
  - Rhinorrhoea [Unknown]
  - Sputum retention [Unknown]
  - Rash [Unknown]
  - Heart rate increased [Unknown]
  - Pain [Unknown]
  - Intestinal obstruction [Unknown]
  - Fatigue [Unknown]
  - Abdominal pain lower [Unknown]
  - Constipation [Not Recovered/Not Resolved]
  - Lung infection [Unknown]
  - Metastases to abdominal cavity [Unknown]
  - Hypoaesthesia [Recovering/Resolving]
  - Sleep disorder [Unknown]
  - Bronchial disorder [Unknown]
  - Pleural effusion [Unknown]
  - Product use in unapproved indication [Unknown]

NARRATIVE: CASE EVENT DATE: 20130402
